FAERS Safety Report 22130622 (Version 1)
Quarter: 2023Q1

REPORT INFORMATION
  Report Type: Other
  Country: AE (occurrence: None)
  Receive Date: 20230323
  Receipt Date: 20230323
  Transmission Date: 20230417
  Serious: Yes (Death)
  Sender: FDA-Public Use
  Company Number: AE-ROCHE-3312396

PATIENT
  Sex: Female

DRUGS (2)
  1. TOCILIZUMAB [Suspect]
     Active Substance: TOCILIZUMAB
     Indication: COVID-19
     Dosage: FIRST DOSE, TWO DOSES OF 400 MG OF TOCILIZUMAB INTRAVENOUSLY 24 HOURS APART
     Route: 042
  2. TOCILIZUMAB [Suspect]
     Active Substance: TOCILIZUMAB
     Indication: Cytokine release syndrome
     Dosage: GIVEN AFTER 24 HOURS OF FIRST DOSE.
     Route: 042

REACTIONS (3)
  - Maternal death [Fatal]
  - Maternal exposure during pregnancy [Unknown]
  - Off label use [Unknown]
